FAERS Safety Report 10452704 (Version 4)
Quarter: 2014Q4

REPORT INFORMATION
  Report Type: Spontaneous
  Country: JP (occurrence: JP)
  Receive Date: 20140915
  Receipt Date: 20141017
  Transmission Date: 20150528
  Serious: Yes (Hospitalization, Disabling, Other)
  Sender: FDA-Public Use
  Company Number: JP-009507513-1409JPN005252

PATIENT
  Age: 86 Year
  Sex: Female

DRUGS (12)
  1. SIGMART [Concomitant]
     Active Substance: NICORANDIL
     Dosage: 15 MG, QD
     Route: 048
  2. JANUVIA [Concomitant]
     Active Substance: SITAGLIPTIN PHOSPHATE
     Indication: DIABETES MELLITUS
     Dosage: 25 MG, QD
     Route: 048
  3. BLOPRESS [Concomitant]
     Active Substance: CANDESARTAN CILEXETIL
     Dosage: 4 MG, QD
     Route: 048
  4. BONALON [Suspect]
     Active Substance: ALENDRONATE SODIUM
     Indication: OSTEOPOROSIS
     Dosage: 35 MG, WEEKLY
     Route: 048
     Dates: start: 20081021, end: 201302
  5. MARZULENE-S [Concomitant]
     Active Substance: SODIUM GUALENATE
     Dosage: 1.5 MG, QD
     Route: 048
  6. BONALON [Suspect]
     Active Substance: ALENDRONATE SODIUM
     Indication: OSTEOPOROSIS
     Dosage: 5 MG, DAILY
     Route: 048
     Dates: start: 20050530, end: 20081020
  7. TALTIRELIN [Concomitant]
     Active Substance: TALTIRELIN
     Indication: SPINOCEREBELLAR DISORDER
     Dosage: 5 MG, QD
     Route: 048
     Dates: start: 20070418
  8. CALFINA [Concomitant]
     Dosage: 1.5 MICROGRAM, QD
     Route: 048
  9. MOHRUS L [Concomitant]
     Active Substance: KETOPROFEN
     Dosage: 40 MG, QD
     Route: 062
     Dates: start: 20091020
  10. FERRUM (FERROUS FUMARATE) [Concomitant]
     Indication: ANAEMIA
     Dosage: 100 MG, QD
     Route: 048
  11. BIOFERMIN (BIFIDOBACTERIUM BIFIDUM) [Concomitant]
     Dosage: 36 MG, QD
     Route: 048
  12. BAYASPIRIN [Concomitant]
     Active Substance: ASPIRIN
     Dosage: 100 MG, QD
     Route: 048

REACTIONS (3)
  - Epistaxis [Recovering/Resolving]
  - Tooth socket haemorrhage [Recovering/Resolving]
  - Osteonecrosis of jaw [Not Recovered/Not Resolved]

NARRATIVE: CASE EVENT DATE: 201302
